FAERS Safety Report 21301180 (Version 1)
Quarter: 2022Q3

REPORT INFORMATION
  Report Type: Spontaneous
  Country: NL (occurrence: NL)
  Receive Date: 20220907
  Receipt Date: 20220907
  Transmission Date: 20221027
  Serious: Yes (Hospitalization)
  Sender: FDA-Public Use
  Company Number: NL-TEVA-2022-NL-2067432

PATIENT
  Age: 31 Year
  Sex: Male

DRUGS (2)
  1. PREDNISONE [Suspect]
     Active Substance: PREDNISONE
     Indication: Delayed haemolytic transfusion reaction
     Dosage: 1 MILLIGRAM/KILOGRAM
     Route: 065
  2. DARBEPOETIN ALFA [Concomitant]
     Active Substance: DARBEPOETIN ALFA
     Indication: Drug therapy
     Dosage: UNK
     Route: 065

REACTIONS (1)
  - Rebound effect [Unknown]
